FAERS Safety Report 7197940-X (Version None)
Quarter: 2010Q4

REPORT INFORMATION
  Report Type: 
  Country: None (occurrence: None)
  Receive Date: 20101227
  Receipt Date: 20101213
  Transmission Date: 20110411
  Serious: Yes (Hospitalization)
  Sender: FDA-Public Use
  Company Number: AU-ROCHE-744944

PATIENT
  Sex: Male
  Weight: 90 kg

DRUGS (8)
  1. PEGINTERFERON ALFA-2A [Suspect]
     Indication: HEPATITIS C
     Dosage: FREQUENCY: WEEKLY
     Route: 058
     Dates: start: 20100218
  2. RIBAVIRIN [Suspect]
     Indication: HEPATITIS C
     Route: 048
     Dates: start: 20100215
  3. BLINDED TMC435 [Suspect]
     Indication: HEPATITIS C
     Dosage: CODE WAS BROKEN,PATIENT RECEIVED TMC435 (CAPSULES ,ORAL) 100 MG TWICE A DAY
     Route: 048
     Dates: start: 20100215
  4. ADALAT [Concomitant]
     Indication: HYPERTENSION
  5. ATACAND [Concomitant]
     Indication: HYPERTENSION
     Dosage: DRUG REPORTED AS CANDESARTAN CILEXETIL
  6. METOPROLOL TARTRATE [Concomitant]
     Indication: HYPERTENSION
     Dates: start: 20100202
  7. OLMETEC [Concomitant]
     Indication: HYPERTENSION
     Dates: start: 20100306
  8. CIPRAMIL [Concomitant]
     Indication: MOOD SWINGS
     Dates: start: 20100301

REACTIONS (1)
  - CHOLECYSTITIS [None]
